FAERS Safety Report 24725118 (Version 2)
Quarter: 2025Q1

REPORT INFORMATION
  Report Type: Spontaneous
  Country: JP (occurrence: JP)
  Receive Date: 20241212
  Receipt Date: 20250205
  Transmission Date: 20250409
  Serious: Yes (Death, Hospitalization)
  Sender: ROCHE
  Company Number: JP-CHUGAI-2024042518

PATIENT
  Age: 78 Year
  Sex: Male

DRUGS (6)
  1. TECENTRIQ [Suspect]
     Active Substance: ATEZOLIZUMAB
     Indication: Hepatocellular carcinoma
     Dosage: UNK
     Route: 040
     Dates: start: 202304, end: 202306
  2. TECENTRIQ [Suspect]
     Active Substance: ATEZOLIZUMAB
     Dosage: UNK
     Route: 040
     Dates: start: 202308, end: 202309
  3. TECENTRIQ [Suspect]
     Active Substance: ATEZOLIZUMAB
     Dosage: UNK
     Route: 040
     Dates: start: 202312
  4. AVASTIN [Suspect]
     Active Substance: BEVACIZUMAB
     Indication: Hepatocellular carcinoma
     Dosage: UNK
     Route: 040
     Dates: start: 202304, end: 202306
  5. AVASTIN [Suspect]
     Active Substance: BEVACIZUMAB
     Dosage: UNK
     Route: 040
     Dates: start: 202308, end: 202309
  6. AVASTIN [Suspect]
     Active Substance: BEVACIZUMAB
     Dosage: UNK
     Route: 040
     Dates: start: 202312

REACTIONS (6)
  - Respiratory failure [Fatal]
  - Pulmonary alveolar haemorrhage [Fatal]
  - Organising pneumonia [Fatal]
  - Haemophilus infection [Unknown]
  - Adrenocorticotropic hormone deficiency [Recovered/Resolved]
  - Adrenal insufficiency [Recovered/Resolved]

NARRATIVE: CASE EVENT DATE: 20230801
